FAERS Safety Report 10084843 (Version 2)
Quarter: 2014Q2

REPORT INFORMATION
  Report Type: Spontaneous
  Country: TR (occurrence: TR)
  Receive Date: 20140417
  Receipt Date: 20140620
  Transmission Date: 20141212
  Serious: Yes (Hospitalization, Other)
  Sender: FDA-Public Use
  Company Number: TR-ELI_LILLY_AND_COMPANY-TR201404001042

PATIENT
  Sex: Female
  Weight: 40.3 kg

DRUGS (1)
  1. SOMATROPIN [Suspect]
     Indication: GROWTH HORMONE DEFICIENCY
     Dosage: UNK, UNKNOWN
     Route: 065
     Dates: start: 201402, end: 20140402

REACTIONS (3)
  - Peroneal nerve palsy [Recovered/Resolved]
  - Nerve compression [Recovered/Resolved]
  - Gait disturbance [Recovered/Resolved]
